FAERS Safety Report 5848222-7 (Version None)
Quarter: 2008Q3

REPORT INFORMATION
  Report Type: 
  Country: None (occurrence: None)
  Receive Date: 20080818
  Receipt Date: 20080808
  Transmission Date: 20090109
  Serious: Yes (Hospitalization)
  Sender: FDA-Public Use
  Company Number: B0533512A

PATIENT
  Age: 77 Year
  Sex: Female

DRUGS (9)
  1. GLUCOPHAGE [Suspect]
     Route: 065
     Dates: end: 20080722
  2. ADALAT [Suspect]
     Indication: HYPERTENSION
     Route: 048
     Dates: end: 20080723
  3. SEROXAT [Suspect]
     Indication: DRUG USE FOR UNKNOWN INDICATION
     Route: 048
     Dates: end: 20080723
  4. AMARYL [Suspect]
     Route: 048
     Dates: end: 20080722
  5. XALATAN [Concomitant]
     Route: 065
  6. SERETIDE [Concomitant]
     Route: 055
  7. SPIRIX [Concomitant]
     Route: 065
     Dates: start: 20080722
  8. VENTOLIN [Concomitant]
     Route: 065
  9. ATROVENT [Concomitant]
     Route: 065

REACTIONS (2)
  - DRUG TOXICITY [None]
  - HYPOGLYCAEMIA [None]
